FAERS Safety Report 25673917 (Version 1)
Quarter: 2025Q3

REPORT INFORMATION
  Report Type: Spontaneous
  Country: US (occurrence: US)
  Receive Date: 20250813
  Receipt Date: 20250813
  Transmission Date: 20251021
  Serious: No
  Sender: ABBVIE
  Company Number: US-ABBVIE-6410921

PATIENT
  Sex: Female

DRUGS (13)
  1. VENCLEXTA [Suspect]
     Active Substance: VENETOCLAX
     Indication: Product used for unknown indication
     Route: 048
  2. INQOVI [Suspect]
     Active Substance: CEDAZURIDINE\DECITABINE
     Indication: Acute myeloid leukaemia
     Dosage: 135MG: DECITABINE 35 MG + CEDAZURIDINE 100 MG ON DAYS 1-5 OF 28-DAY-CYCLE
     Route: 048
     Dates: start: 20230616, end: 20240519
  3. INQOVI [Suspect]
     Active Substance: CEDAZURIDINE\DECITABINE
     Indication: Acute myeloid leukaemia
     Dosage: 135MG: DECITABINE 35 MG + CEDAZURIDINE 100 MG ON DAYS 1-5 OF 42-DAY-CYCLE;
     Route: 048
     Dates: start: 20240520, end: 20240627
  4. INQOVI [Suspect]
     Active Substance: CEDAZURIDINE\DECITABINE
     Indication: Acute myeloid leukaemia
     Dosage: 135MG: DECITABINE 35 MG + CEDAZURIDINE 100 MG ON DAYS 1-5 OF 28-DAY-CYCLE
     Route: 048
     Dates: start: 20240628, end: 20240915
  5. INQOVI [Suspect]
     Active Substance: CEDAZURIDINE\DECITABINE
     Indication: Acute myeloid leukaemia
     Dosage: 135MG: DECITABINE 35 MG + CEDAZURIDINE 100 MG ON DAYS 1-4 OF 28-DAY-CYCLE;
     Route: 048
     Dates: start: 20240916
  6. LEVOTHYROXINE [Concomitant]
     Active Substance: LEVOTHYROXINE
     Indication: Product used for unknown indication
     Route: 048
  7. LOPERAMIDE [Concomitant]
     Active Substance: LOPERAMIDE
     Indication: Product used for unknown indication
     Route: 048
  8. MOXIFLOXACIN [Concomitant]
     Active Substance: MOXIFLOXACIN
     Indication: Product used for unknown indication
     Route: 048
  9. ONDANSETRON [Concomitant]
     Active Substance: ONDANSETRON
     Indication: Product used for unknown indication
     Route: 048
  10. SERTRALINE [Concomitant]
     Active Substance: SERTRALINE HYDROCHLORIDE
     Indication: Product used for unknown indication
     Route: 048
  11. SYNTHROID [Concomitant]
     Active Substance: LEVOTHYROXINE SODIUM
     Indication: Product used for unknown indication
     Route: 048
  12. VALTREX [Concomitant]
     Active Substance: VALACYCLOVIR HYDROCHLORIDE
     Indication: Product used for unknown indication
     Route: 048
  13. VITAMIN D [Concomitant]
     Active Substance: VITAMIN D NOS
     Indication: Product used for unknown indication
     Route: 048

REACTIONS (5)
  - Diarrhoea [Not Recovered/Not Resolved]
  - Thrombocytopenia [Unknown]
  - Neutropenia [Unknown]
  - Urinary tract infection [Unknown]
  - Anaemia [Unknown]

NARRATIVE: CASE EVENT DATE: 20250708
